FAERS Safety Report 23301358 (Version 1)
Quarter: 2023Q4

REPORT INFORMATION
  Report Type: Other
  Country: US (occurrence: None)
  Receive Date: 20231215
  Receipt Date: 20231215
  Transmission Date: 20240110
  Serious: Yes (Hospitalization)
  Sender: FDA-Public Use
  Company Number: US-ROCHE-3454359

PATIENT
  Age: 32 Year
  Sex: Female
  Weight: 78.996 kg

DRUGS (5)
  1. RITUXAN [Suspect]
     Active Substance: RITUXIMAB
     Indication: Rheumatoid arthritis
     Route: 042
  2. PREDNISONE [Concomitant]
     Active Substance: PREDNISONE
  3. ATIVAN [Concomitant]
     Active Substance: LORAZEPAM
  4. ZOFRAN [Concomitant]
     Active Substance: ONDANSETRON HYDROCHLORIDE
  5. PROMETHAZINE [Concomitant]
     Active Substance: PROMETHAZINE HYDROCHLORIDE

REACTIONS (10)
  - Weight decreased [Unknown]
  - Blood pressure increased [Unknown]
  - Epistaxis [Unknown]
  - Vomiting [Unknown]
  - Tremor [Unknown]
  - Tachycardia [Unknown]
  - Torticollis [Unknown]
  - Thyroid cyst [Unknown]
  - Pituitary cyst [Unknown]
  - Retinal vascular disorder [Unknown]
